FAERS Safety Report 7713903-7 (Version None)
Quarter: 2011Q3

REPORT INFORMATION
  Report Type: 
  Country: None (occurrence: None)
  Receive Date: 20110826
  Receipt Date: 20110622
  Transmission Date: 20111222
  Serious: Yes (Hospitalization)
  Sender: FDA-Public Use
  Company Number: JP-ALLERGAN-1111193US

PATIENT
  Age: 70 Year
  Sex: Female

DRUGS (14)
  1. LUMIGAN [Suspect]
     Indication: ANGLE CLOSURE GLAUCOMA
     Dosage: 2 GTT, SINGLE
     Route: 047
     Dates: start: 20100524
  2. SEROQUEL [Concomitant]
     Dosage: UNK
     Dates: start: 20071218
  3. SINGULAIR [Concomitant]
     Dosage: UNK
  4. PULMICORT [Concomitant]
     Dosage: UNK
     Dates: start: 20030304
  5. ASPARTATE CALCIUM [Concomitant]
     Dosage: UNK
     Dates: start: 20030308
  6. OMEPRAZOLE [Concomitant]
     Dosage: UNK
     Dates: start: 20050101
  7. BROTIZOLAM [Concomitant]
     Dosage: UNK
     Dates: start: 20080122
  8. TRAZODONE HYDROCHLORIDE [Concomitant]
     Dosage: UNK
     Dates: start: 20080106
  9. MAGNESIUM SULFATE [Concomitant]
     Dosage: UNK
     Dates: start: 20080222
  10. HOKUNALIN [Concomitant]
     Dosage: UNK
     Dates: start: 20030303
  11. SILECE [Concomitant]
     Dosage: UNK
     Dates: start: 20050214
  12. ALFAROL [Concomitant]
     Dosage: UNK
     Dates: start: 20030308
  13. THEO-DUR [Concomitant]
     Dosage: UNK
     Dates: start: 20030304
  14. DEPAS [Concomitant]
     Dosage: UNK
     Dates: start: 20030304

REACTIONS (7)
  - GOUT [None]
  - PUNCTATE KERATITIS [None]
  - HYPERLIPIDAEMIA [None]
  - HYPERTENSION [None]
  - PYELONEPHRITIS [None]
  - CONJUNCTIVAL HYPERAEMIA [None]
  - BLEPHARITIS [None]
